FAERS Safety Report 24380903 (Version 1)
Quarter: 2024Q3

REPORT INFORMATION
  Report Type: Spontaneous
  Country: US (occurrence: US)
  Receive Date: 20240930
  Receipt Date: 20240930
  Transmission Date: 20241017
  Serious: No
  Sender: DAIICHI
  Company Number: US-DSJP-DS-2024-101416-US

PATIENT
  Sex: Female

DRUGS (1)
  1. ENHERTU [Suspect]
     Active Substance: FAM-TRASTUZUMAB DERUXTECAN-NXKI
     Indication: Lung neoplasm malignant
     Dosage: UNK
     Route: 065

REACTIONS (4)
  - Mobility decreased [Unknown]
  - Abdominal discomfort [Unknown]
  - Fatigue [Unknown]
  - Dyspnoea [Unknown]
